FAERS Safety Report 9135174 (Version 3)
Quarter: 2013Q3

REPORT INFORMATION
  Report Type: Report from Study
  Country: DK (occurrence: DK)
  Receive Date: 20130304
  Receipt Date: 20130903
  Transmission Date: 20140515
  Serious: Yes (Hospitalization)
  Sender: FDA-Public Use
  Company Number: DK-CELGENEUS-044-C4047-12112876

PATIENT
  Age: 73 Year
  Sex: Female
  Weight: 57.6 kg

DRUGS (58)
  1. PREDNISOLONE [Concomitant]
     Indication: CHRONIC OBSTRUCTIVE PULMONARY DISEASE
     Dosage: 50 MILLIGRAM
     Route: 048
     Dates: start: 20120828, end: 20120905
  2. PREDNISOLONE [Concomitant]
     Dosage: 25 MILLIGRAM
     Route: 048
     Dates: start: 20120905, end: 20120918
  3. PREDNISOLONE [Concomitant]
     Dosage: 12.5 MILLIGRAM
     Route: 048
     Dates: start: 20120918, end: 20120924
  4. PREDNISOLONE [Concomitant]
     Dosage: 37.5 MILLIGRAM
     Route: 048
     Dates: start: 20121114, end: 20121122
  5. PREDNISOLONE [Concomitant]
     Dosage: 25 MILLIGRAM
     Route: 048
     Dates: start: 20121122
  6. PREDNISOLONE [Concomitant]
     Dosage: 37.5 MILLIGRAM
     Route: 065
     Dates: start: 20121128
  7. PREDNISOLONE [Concomitant]
     Dosage: 37.5 MILLIGRAM
     Route: 065
     Dates: start: 20121128
  8. PREDNISOLONE [Concomitant]
     Dosage: 25 MILLIGRAM
     Route: 048
     Dates: start: 20121208
  9. PREDNISOLONE [Concomitant]
     Dosage: 25 MILLIGRAM
     Route: 048
     Dates: start: 20121128
  10. DARBEPOETIN ALFA [Concomitant]
     Indication: PROPHYLAXIS
     Route: 041
     Dates: start: 20120905
  11. CYANOCOBALAMIN [Concomitant]
     Indication: PROPHYLAXIS
     Route: 030
     Dates: start: 20120911
  12. VORICONAZOLE [Concomitant]
     Indication: LUNG INFECTION
     Dosage: 800 MILLIGRAM
     Route: 048
     Dates: start: 20120828, end: 20120828
  13. VORICONAZOLE [Concomitant]
     Indication: CHRONIC OBSTRUCTIVE PULMONARY DISEASE
     Dosage: 400 MILLIGRAM
     Route: 048
     Dates: start: 20120829, end: 20120907
  14. VORICONAZOLE [Concomitant]
     Indication: PYREXIA
     Dosage: 600 MILLIGRAM
     Route: 048
     Dates: start: 20120907, end: 20120918
  15. VORICONAZOLE [Concomitant]
     Dosage: 400 MILLIGRAM
     Route: 048
     Dates: start: 20120918
  16. VORICONAZOLE [Concomitant]
     Route: 065
     Dates: start: 201212
  17. SERETIDE [Concomitant]
     Indication: NASOPHARYNGITIS
     Dosage: 25/250 UG
     Route: 055
  18. MABLET [Concomitant]
     Indication: PROPHYLAXIS
     Dosage: 1
     Route: 048
  19. KALIUM CHLORID [Concomitant]
     Indication: PROPHYLAXIS
     Dosage: 750 MILLIGRAM
     Route: 048
     Dates: start: 20121203
  20. KALIUM CHLORID [Concomitant]
     Dosage: 750 MILLIGRAM
     Route: 048
     Dates: end: 20121218
  21. KALIUM CHLORID [Concomitant]
     Dosage: 1500 MILLIGRAM
     Route: 048
     Dates: start: 20121220
  22. FUROSEMIDE [Concomitant]
     Indication: PROPHYLAXIS
     Route: 048
     Dates: start: 20121123
  23. FUROSEMIDE [Concomitant]
     Indication: OBSTRUCTIVE AIRWAYS DISORDER
     Dosage: 80 MILLIGRAM
     Route: 048
     Dates: start: 20121207
  24. FUROSEMIDE [Concomitant]
     Dosage: 40 MILLIGRAM
     Route: 048
     Dates: end: 20120217
  25. FUROSEMIDE [Concomitant]
     Dosage: 20 MILLIGRAM
     Route: 048
     Dates: start: 20121217, end: 20121220
  26. FUROSEMIDE [Concomitant]
     Dosage: 80 MILLIGRAM
     Route: 048
     Dates: start: 20121220
  27. TRIMETHOPRIM SULFAMETHOXAZOLE [Concomitant]
     Indication: LUNG INFECTION
     Dosage: 400/80MG
     Route: 048
     Dates: start: 20120905
  28. TRIMETHOPRIM SULFAMETHOXAZOLE [Concomitant]
     Indication: PYREXIA
     Dosage: 400/80MG
     Route: 048
     Dates: start: 20120905, end: 20121221
  29. TRIMETHOPRIM SULFAMETHOXAZOLE [Concomitant]
     Dosage: 400/80MG, 2 X 2 DAILY
     Route: 048
     Dates: start: 20121221
  30. CC-4047 [Suspect]
     Indication: PLASMA CELL MYELOMA
     Dosage: 4 MILLIGRAM
     Route: 048
     Dates: start: 20120628
  31. CC-4047 [Suspect]
     Dosage: 4 MILLIGRAM
     Route: 048
     Dates: start: 20121026
  32. CC-4047 [Suspect]
     Dosage: 3 MILLIGRAM
     Route: 048
     Dates: start: 20121123, end: 20121204
  33. CC-4047 [Suspect]
     Dosage: 3 MILLIGRAM
     Route: 048
     Dates: start: 20121227
  34. DEXAMETHASONE [Suspect]
     Indication: PLASMA CELL MYELOMA
     Dosage: 40 MILLIGRAM
     Route: 065
     Dates: start: 20120628
  35. DEXAMETHASONE [Suspect]
     Dosage: 20 MILLIGRAM
     Route: 065
     Dates: start: 20121026
  36. DEXAMETHASONE [Suspect]
     Dosage: 20 MILLIGRAM
     Route: 065
     Dates: start: 20121123, end: 20121204
  37. ENOXAPARIN [Concomitant]
     Indication: THROMBOSIS PROPHYLAXIS
     Dosage: 80 MILLIGRAM
     Route: 058
     Dates: start: 20120324
  38. ENOXAPARIN [Concomitant]
     Indication: PROPHYLAXIS
  39. ZOPICLONE [Concomitant]
     Indication: PROPHYLAXIS
     Dosage: FOR THE NIGHT
     Route: 048
     Dates: start: 20120801
  40. LERCANIDIPINE [Concomitant]
     Indication: CARDIAC DISORDER
     Dosage: 10 MILLIGRAM
     Route: 048
     Dates: start: 20121206
  41. LERCANIDIPINE [Concomitant]
     Dosage: 10 MILLIGRAM
     Route: 048
     Dates: end: 20121217
  42. PARACETAMOL [Concomitant]
     Indication: LUNG INFECTION
     Route: 048
     Dates: start: 20120813
  43. SALMETEROL [Concomitant]
     Indication: NASOPHARYNGITIS
     Dosage: .1 MILLIGRAM
     Route: 055
     Dates: end: 20121114
  44. SALMETEROL [Concomitant]
     Indication: CHRONIC OBSTRUCTIVE PULMONARY DISEASE
     Dosage: .1 MILLIGRAM
     Route: 055
     Dates: start: 20121210
  45. SIMVASTATIN [Concomitant]
     Indication: PRODUCT USED FOR UNKNOWN INDICATION
     Dosage: 20 MILLIGRAM
     Route: 048
  46. SIMVASTATIN [Concomitant]
     Dosage: 40 MILLIGRAM
     Route: 048
  47. BUDESONIDE [Concomitant]
     Indication: NASOPHARYNGITIS
     Dosage: .8 MILLIGRAM
     Route: 055
  48. TIOTROPIUM [Concomitant]
     Indication: NASOPHARYNGITIS
     Dosage: .018 MILLIGRAM
     Route: 055
     Dates: start: 20120724, end: 20121107
  49. TIOTROPIUM [Concomitant]
     Indication: CHRONIC OBSTRUCTIVE PULMONARY DISEASE
     Dosage: .01 MILLIGRAM
     Route: 055
     Dates: start: 20121114
  50. TIOTROPIUM [Concomitant]
     Dosage: 5 MICROGRAM
     Route: 055
     Dates: start: 2012
  51. TERBUTALINE [Concomitant]
     Indication: NASOPHARYNGITIS
     Route: 055
     Dates: start: 20121107
  52. UNIKALK FORTE [Concomitant]
     Indication: BONE DISORDER
     Dosage: 2 TABLET
     Route: 048
     Dates: start: 20120820
  53. LOPERAMIDE [Concomitant]
     Indication: DIARRHOEA
     Route: 048
     Dates: start: 20120815
  54. MAGNESIA [Concomitant]
     Indication: PROPHYLAXIS
     Dosage: 6 TABLET
     Route: 048
     Dates: start: 20120823
  55. METOCLOPRAMIDE [Concomitant]
     Indication: NAUSEA
     Route: 048
     Dates: start: 20120812, end: 20121122
  56. FILGRASTIM [Concomitant]
     Indication: PROPHYLAXIS
     Route: 050
     Dates: start: 20120806
  57. LANSOPRAZOLE [Concomitant]
     Indication: PROPHYLAXIS
     Dosage: 30 MILLIGRAM
     Route: 048
     Dates: start: 20120812
  58. PREDNISOLONE [Concomitant]
     Indication: PROPHYLAXIS
     Dosage: 7.5 MILLIGRAM
     Route: 048
     Dates: start: 20121128

REACTIONS (5)
  - Infective exacerbation of chronic obstructive airways disease [Recovered/Resolved with Sequelae]
  - Infective exacerbation of chronic obstructive airways disease [Recovered/Resolved]
  - Pyrexia [Recovered/Resolved]
  - Dyspnoea [Recovered/Resolved]
  - Dyspnoea [Recovered/Resolved]
